FAERS Safety Report 25283309 (Version 1)
Quarter: 2025Q2

REPORT INFORMATION
  Report Type: Spontaneous
  Country: CN (occurrence: CN)
  Receive Date: 20250508
  Receipt Date: 20250508
  Transmission Date: 20250717
  Serious: Yes (Life-Threatening, Hospitalization)
  Sender: PFIZER
  Company Number: CN-PFIZER INC-PV202500053701

PATIENT
  Age: 74 Year
  Sex: Male

DRUGS (1)
  1. TIGECYCLINE [Suspect]
     Active Substance: TIGECYCLINE
     Indication: Pneumonia acinetobacter
     Dosage: 50 MG, 2X/DAY
     Route: 041
     Dates: start: 20250421, end: 20250504

REACTIONS (3)
  - Blood fibrinogen decreased [Recovered/Resolved]
  - Activated partial thromboplastin time prolonged [Recovering/Resolving]
  - Off label use [Unknown]

NARRATIVE: CASE EVENT DATE: 20250421
